FAERS Safety Report 4808547-0 (Version None)
Quarter: 2005Q4

REPORT INFORMATION
  Report Type: 
  Country: None (occurrence: None)
  Receive Date: 20051021
  Receipt Date: 20040831
  Transmission Date: 20060501
  Serious: No
  Sender: FDA-Public Use
  Company Number: FR_040904680

PATIENT
  Age: 45 Year
  Sex: Male

DRUGS (2)
  1. ZYPREXA [Suspect]
     Indication: SCHIZOPHRENIA
     Dosage: 30 MG/1 DAY
     Dates: start: 20020101
  2. EFFEXOR [Concomitant]

REACTIONS (4)
  - CONDITION AGGRAVATED [None]
  - LEUKOPENIA [None]
  - LYMPHOPENIA [None]
  - NEUTROPENIA [None]
